FAERS Safety Report 10885230 (Version 2)
Quarter: 2015Q1

REPORT INFORMATION
  Report Type: Spontaneous
  Country: JP (occurrence: JP)
  Receive Date: 20150304
  Receipt Date: 20150317
  Transmission Date: 20150721
  Serious: Yes (Other)
  Sender: FDA-Public Use
  Company Number: JP-EISAI MEDICAL RESEARCH-EC-2015-004508

PATIENT
  Age: 18 Year
  Sex: Female
  Weight: 38 kg

DRUGS (3)
  1. INOVELON [Suspect]
     Active Substance: RUFINAMIDE
     Indication: LENNOX-GASTAUT SYNDROME
     Dosage: UNKNOWN
     Route: 048
     Dates: start: 20140523, end: 20140608
  2. INOVELON [Suspect]
     Active Substance: RUFINAMIDE
     Dosage: DOSE TAPERED (UNSPECIFIED)
     Route: 048
     Dates: start: 201406, end: 20141219
  3. INOVELON [Suspect]
     Active Substance: RUFINAMIDE
     Route: 048
     Dates: start: 20140609, end: 201406

REACTIONS (2)
  - Pneumonia [Recovering/Resolving]
  - Somnolence [Recovering/Resolving]

NARRATIVE: CASE EVENT DATE: 20140603
